FAERS Safety Report 14859878 (Version 2)
Quarter: 2018Q2

REPORT INFORMATION
  Report Type: Spontaneous
  Country: IT (occurrence: IT)
  Receive Date: 20180508
  Receipt Date: 20180523
  Transmission Date: 20180711
  Serious: Yes (Hospitalization)
  Sender: FDA-Public Use
  Company Number: IT-BAYER-2018-082952

PATIENT
  Age: 77 Year
  Sex: Male

DRUGS (6)
  1. ACETYLSALICYLIC ACID (} 100 MG) [Suspect]
     Active Substance: ASPIRIN
     Dosage: UNK
     Route: 048
  2. OMNIC [Concomitant]
     Active Substance: TAMSULOSIN HYDROCHLORIDE
     Dosage: 0.4 MG, UNK
     Route: 048
  3. ESOMEPRAZOLE [Concomitant]
     Active Substance: ESOMEPRAZOLE
     Dosage: 20 MG, UNK
     Route: 048
  4. JUMEX [Concomitant]
     Active Substance: SELEGILINE HYDROCHLORIDE
     Dosage: UNK
     Route: 048
  5. KARVEA [Concomitant]
     Active Substance: IRBESARTAN
     Dosage: UNK
     Route: 048
  6. NORVASC [Concomitant]
     Active Substance: AMLODIPINE BESYLATE
     Dosage: UNK
     Route: 048

REACTIONS (2)
  - Cerebral haemorrhage [Not Recovered/Not Resolved]
  - Coma [Not Recovered/Not Resolved]

NARRATIVE: CASE EVENT DATE: 20170926
